FAERS Safety Report 15243240 (Version 2)
Quarter: 2018Q3

REPORT INFORMATION
  Report Type: Spontaneous
  Country: US (occurrence: US)
  Receive Date: 20180806
  Receipt Date: 20180814
  Transmission Date: 20181010
  Serious: Yes (Other)
  Sender: FDA-Public Use
  Company Number: US-ASTRAZENECA-2018SE97315

PATIENT
  Age: 19298 Day
  Sex: Female
  Weight: 136.5 kg

DRUGS (3)
  1. CRESTOR [Suspect]
     Active Substance: ROSUVASTATIN CALCIUM
     Indication: BLOOD CHOLESTEROL
     Route: 048
  2. PRILOSEC [Suspect]
     Active Substance: OMEPRAZOLE MAGNESIUM
     Indication: GASTROOESOPHAGEAL REFLUX DISEASE
     Route: 048
     Dates: start: 2008
  3. GLIMEPIRIDE. [Concomitant]
     Active Substance: GLIMEPIRIDE
     Indication: DIABETES MELLITUS
     Dates: start: 2010

REACTIONS (8)
  - Peripheral swelling [Unknown]
  - Rash [Recovering/Resolving]
  - Diabetes mellitus [Unknown]
  - Skin ulcer [Unknown]
  - Vasculitis [Unknown]
  - Adverse drug reaction [Unknown]
  - Blood cholesterol increased [Unknown]
  - Wound secretion [Unknown]
